FAERS Safety Report 10677066 (Version 6)
Quarter: 2016Q1

REPORT INFORMATION
  Report Type: Report from Study
  Country: US (occurrence: US)
  Receive Date: 20141226
  Receipt Date: 20160304
  Transmission Date: 20160525
  Serious: Yes (Hospitalization)
  Sender: FDA-Public Use
  Company Number: US-SA-2013SA135214

PATIENT
  Age: 59 Year
  Sex: Female

DRUGS (4)
  1. AUBAGIO [Suspect]
     Active Substance: TERIFLUNOMIDE
     Indication: MULTIPLE SCLEROSIS
     Route: 048
     Dates: start: 20131122
  2. AUBAGIO [Suspect]
     Active Substance: TERIFLUNOMIDE
     Indication: MULTIPLE SCLEROSIS
     Route: 048
     Dates: start: 20141122, end: 20151225
  3. AUBAGIO [Suspect]
     Active Substance: TERIFLUNOMIDE
     Indication: MULTIPLE SCLEROSIS
     Route: 048
  4. AUBAGIO [Suspect]
     Active Substance: TERIFLUNOMIDE
     Indication: MULTIPLE SCLEROSIS
     Route: 048

REACTIONS (9)
  - Pain [Not Recovered/Not Resolved]
  - Drug dose omission [Unknown]
  - Hypotension [Unknown]
  - Pneumonia [Recovering/Resolving]
  - Blood pressure abnormal [Unknown]
  - Dehydration [Unknown]
  - Organ failure [Recovering/Resolving]
  - Clostridium difficile infection [Unknown]
  - Infection [Recovering/Resolving]

NARRATIVE: CASE EVENT DATE: 201312
